FAERS Safety Report 9795916 (Version 4)
Quarter: 2014Q1

REPORT INFORMATION
  Report Type: Report from Study
  Country: US (occurrence: US)
  Receive Date: 20140103
  Receipt Date: 20140213
  Transmission Date: 20141002
  Serious: Yes (Death, Hospitalization)
  Sender: FDA-Public Use
  Company Number: US-PFIZER INC-2013374830

PATIENT
  Age: 71 Year
  Sex: Male

DRUGS (18)
  1. LOVENOX [Suspect]
     Indication: PULMONARY EMBOLISM
     Dosage: UNK
     Route: 065
     Dates: start: 20130101, end: 20130707
  2. BLINDED THERAPY [Suspect]
     Indication: COLORECTAL CANCER METASTATIC
     Dosage: 70 MG, 2 IN 1 D
     Route: 048
     Dates: start: 20130530, end: 20130610
  3. ATROPINE W/DIPHENOXYLATE [Concomitant]
     Indication: DIARRHOEA
     Dosage: AS REQUIRED
     Route: 065
     Dates: start: 20111212, end: 20130707
  4. ATROPINE W/DIPHENOXYLATE [Concomitant]
     Indication: PROPHYLAXIS AGAINST DIARRHOEA
  5. OXYCODONE [Concomitant]
     Indication: PAIN PROPHYLAXIS
     Dosage: UNK
     Route: 048
     Dates: start: 20130530, end: 20130707
  6. LORAZEPAM [Concomitant]
     Indication: ANXIETY
     Dosage: UNK
     Route: 065
     Dates: start: 20130506, end: 20130707
  7. METOPROLOL [Concomitant]
     Indication: HYPERTENSION
     Dosage: UNK
     Route: 065
     Dates: start: 20110823, end: 20130707
  8. ONDANSETRON [Concomitant]
     Indication: PROPHYLAXIS OF NAUSEA AND VOMITING
     Dosage: UNK
     Route: 065
     Dates: start: 20111025, end: 20130707
  9. PAROXETINE [Concomitant]
     Indication: DEPRESSION
     Dosage: UNK
     Route: 065
     Dates: start: 20111025, end: 20130707
  10. COLACE [Concomitant]
     Indication: CONSTIPATION PROPHYLAXIS
     Dosage: UNK
     Route: 048
     Dates: start: 20130514, end: 20130707
  11. VITAMIN B12 [Concomitant]
     Indication: VITAMIN SUPPLEMENTATION
     Dosage: AS REQUIRED
     Route: 065
     Dates: start: 20111025, end: 20130707
  12. VITAMIN B COMPLEX [Concomitant]
     Indication: VITAMIN SUPPLEMENTATION
     Dosage: AS REQUIRED
     Route: 065
     Dates: start: 20130514, end: 20130707
  13. WARFARIN SODIUM [Concomitant]
     Indication: PULMONARY EMBOLISM
     Dosage: UNK
     Dates: start: 20130501, end: 20130707
  14. MORPHINE [Concomitant]
     Indication: ARTHRALGIA
     Dosage: UNK
     Dates: start: 20130629, end: 20130707
  15. MORPHINE [Concomitant]
     Indication: PAIN IN EXTREMITY
  16. VITAMIN D3 [Concomitant]
     Indication: VITAMIN SUPPLEMENTATION
     Dosage: UNK
     Route: 065
     Dates: start: 20130514, end: 20130707
  17. TYLENOL [Concomitant]
     Indication: ARTHRALGIA
     Dosage: UNK
     Dates: start: 20130629, end: 20130707
  18. TYLENOL [Concomitant]
     Indication: PAIN IN EXTREMITY

REACTIONS (4)
  - Cardio-respiratory arrest [Fatal]
  - Acidosis [Fatal]
  - Renal failure [Fatal]
  - Haemorrhage intracranial [Fatal]
